FAERS Safety Report 8951686 (Version 2)
Quarter: 2013Q1

REPORT INFORMATION
  Report Type: Report from Study
  Country: US (occurrence: US)
  Receive Date: 20121204
  Receipt Date: 20130325
  Transmission Date: 20140127
  Serious: Yes (Other)
  Sender: FDA-Public Use
  Company Number: US-ROCHE-1027950

PATIENT
  Age: 39 Year
  Sex: Female
  Weight: 98.52 kg

DRUGS (2)
  1. XELODA [Suspect]
     Indication: COLON CANCER
     Dosage: 1000 MG IN MORNING AND 1500 MG IN EVENING
     Route: 048
     Dates: start: 201112
  2. THYROID MEDICATION [Concomitant]
     Route: 048

REACTIONS (12)
  - Disease progression [Unknown]
  - Dyspepsia [Unknown]
  - Local swelling [Unknown]
  - Pain in extremity [Unknown]
  - Fatigue [Unknown]
  - Oral pain [Unknown]
  - Nasopharyngitis [Recovering/Resolving]
  - Burning sensation [Unknown]
  - Pain [Unknown]
  - Swelling [Unknown]
  - Dizziness [Not Recovered/Not Resolved]
  - Nasopharyngitis [Not Recovered/Not Resolved]
